FAERS Safety Report 8151230-7 (Version None)
Quarter: 2012Q1

REPORT INFORMATION
  Report Type: 
  Country: None (occurrence: None)
  Receive Date: 20120220
  Receipt Date: 20120214
  Transmission Date: 20120608
  Serious: Yes (Hospitalization, Disabling, Congenital Anomaly)
  Sender: FDA-Public Use
  Company Number: PHHY2011JP65390

PATIENT
  Sex: Female
  Weight: 2 kg

DRUGS (3)
  1. PHENOBARBITAL TAB [Suspect]
     Indication: INFANTILE SPASMS
     Dosage: 140 MG, DAILY
     Route: 064
  2. DEPAKENE [Suspect]
     Indication: INFANTILE SPASMS
     Dosage: 1400 MG, DAILY
     Route: 064
     Dates: end: 20100317
  3. TEGRETOL [Suspect]
     Indication: INFANTILE SPASMS
     Dosage: 1200 MG, DAILY
     Route: 064

REACTIONS (12)
  - HYPOTONIA [None]
  - JOINT CONTRACTURE [None]
  - LOW BIRTH WEIGHT BABY [None]
  - PATENT DUCTUS ARTERIOSUS [None]
  - ATRIAL SEPTAL DEFECT [None]
  - FOETAL GROWTH RESTRICTION [None]
  - RESPIRATORY DISORDER [None]
  - FAILURE TO THRIVE [None]
  - VENTRICULAR SEPTAL DEFECT [None]
  - WRIST DEFORMITY [None]
  - FOETAL ANTICONVULSANT SYNDROME [None]
  - LIMB REDUCTION DEFECT [None]
